FAERS Safety Report 9924318 (Version 2)
Quarter: 2014Q1

REPORT INFORMATION
  Report Type: Spontaneous
  Country: JP (occurrence: JP)
  Receive Date: 20140226
  Receipt Date: 20140226
  Transmission Date: 20141002
  Serious: Yes (Hospitalization)
  Sender: FDA-Public Use
  Company Number: JP-ACCORD-022093

PATIENT
  Age: 64 Year
  Sex: Female

DRUGS (1)
  1. PACLITAXEL [Suspect]
     Indication: ANGIOSARCOMA
     Dosage: MEASURING DAY/ CHEMOTHERAPY DURATION WAS 28 DAY / 15 MONTH

REACTIONS (1)
  - Porphyria non-acute [Unknown]
